FAERS Safety Report 25606067 (Version 1)
Quarter: 2025Q3

REPORT INFORMATION
  Report Type: Spontaneous
  Country: AU (occurrence: AU)
  Receive Date: 20250725
  Receipt Date: 20250725
  Transmission Date: 20251020
  Serious: Yes (Hospitalization, Other)
  Sender: RANBAXY
  Company Number: AU-SUN PHARMACEUTICAL INDUSTRIES LTD-2025R1-518638

PATIENT
  Age: 77 Year
  Sex: Male

DRUGS (12)
  1. LENALIDOMIDE [Suspect]
     Active Substance: LENALIDOMIDE
     Indication: Plasma cell myeloma
     Route: 048
     Dates: start: 20241209, end: 20250318
  2. DEXAMETHASONE [Suspect]
     Active Substance: DEXAMETHASONE
     Indication: Plasma cell myeloma
     Route: 048
     Dates: start: 20241209, end: 20250115
  3. DARATUMUMAB\HYALURONIDASE-FIHJ [Suspect]
     Active Substance: DARATUMUMAB\HYALURONIDASE-FIHJ
     Indication: Plasma cell myeloma
     Route: 058
     Dates: start: 20241105, end: 20250311
  4. PROLIA [Concomitant]
     Active Substance: DENOSUMAB
     Indication: Osteoporosis
     Route: 058
     Dates: start: 20230101
  5. ASPIRIN [Concomitant]
     Active Substance: ASPIRIN
     Indication: Ischaemic heart disease prophylaxis
     Dosage: 100 MILLIGRAM
     Route: 048
     Dates: start: 20241108
  6. CLOPIDOGREL [Concomitant]
     Active Substance: CLOPIDOGREL BISULFATE
     Indication: Prophylaxis
     Dosage: 75 MILLIGRAM, OD
     Route: 048
     Dates: start: 20241112
  7. METOPROLOL [Concomitant]
     Active Substance: METOPROLOL
     Indication: Prophylaxis
     Dosage: 25 MILLIGRAM, OD
     Route: 048
     Dates: start: 20241105
  8. RABEPRAZOLE [Concomitant]
     Active Substance: RABEPRAZOLE
     Indication: Gastrooesophageal reflux disease
     Dosage: 20 MILLIGRAM, OD
     Route: 048
     Dates: start: 20200101
  9. CALCIUM CARBONATE\CHOLECALCIFEROL [Concomitant]
     Active Substance: CALCIUM CARBONATE\CHOLECALCIFEROL
     Indication: Prophylaxis
     Dosage: UNK, OD
     Route: 048
     Dates: start: 20241115
  10. MAGNESIUM CHLORIDE\MAGNESIUM GLUCONATE [Concomitant]
     Active Substance: MAGNESIUM CHLORIDE\MAGNESIUM GLUCONATE
     Indication: Muscle spasms
     Dosage: UNK, OD
     Route: 048
     Dates: start: 20250202
  11. VALACYCLOVIR HYDROCHLORIDE [Concomitant]
     Active Substance: VALACYCLOVIR HYDROCHLORIDE
     Indication: Antiviral prophylaxis
     Dosage: 500 MILLIGRAM, OD
     Route: 048
     Dates: start: 20250205
  12. SULFAMETHOXAZOLE\TRIMETHOPRIM [Concomitant]
     Active Substance: SULFAMETHOXAZOLE\TRIMETHOPRIM
     Indication: Infection prophylaxis
     Route: 048
     Dates: start: 20250311, end: 20250317

REACTIONS (1)
  - Rash maculo-papular [Not Recovered/Not Resolved]

NARRATIVE: CASE EVENT DATE: 20250319
